FAERS Safety Report 25682206 (Version 1)
Quarter: 2025Q3

REPORT INFORMATION
  Report Type: Spontaneous
  Country: US (occurrence: None)
  Receive Date: 20250814
  Receipt Date: 20250814
  Transmission Date: 20251021
  Serious: Yes (Other)
  Sender: FDA-CTU
  Company Number: None

PATIENT
  Age: 62 Year
  Sex: Female

DRUGS (1)
  1. REXULTI [Suspect]
     Active Substance: BREXPIPRAZOLE
     Indication: Antidepressant therapy
     Dates: start: 20250529, end: 20250602

REACTIONS (2)
  - Petechiae [None]
  - Haemorrhage [None]

NARRATIVE: CASE EVENT DATE: 20250602
